FAERS Safety Report 5512652-3 (Version None)
Quarter: 2007Q4

REPORT INFORMATION
  Report Type: 
  Country: None (occurrence: None)
  Receive Date: 20071108
  Receipt Date: 20071108
  Transmission Date: 20080405
  Serious: Yes (Hospitalization)
  Sender: FDA-Public Use
  Company Number: None

PATIENT
  Sex: Male
  Weight: 68.0396 kg

DRUGS (3)
  1. CETUXIMAB 250 MG/M^2 [Suspect]
     Indication: COLON CANCER METASTATIC
     Dosage: WEEKLY
     Dates: start: 20070824, end: 20071018
  2. CAPECITABINE 1250 MG [Suspect]
     Indication: COLON CANCER METASTATIC
     Dosage: BID FOR DAYS 1-14
     Dates: start: 20070824, end: 20071018
  3. OXALIPLATIN [Suspect]
     Indication: COLON CANCER METASTATIC
     Dosage: EVERY 3 WEEKS
     Dates: start: 20070824, end: 20071018

REACTIONS (1)
  - PEAU D'ORANGE [None]
